FAERS Safety Report 25982063 (Version 1)
Quarter: 2025Q4

REPORT INFORMATION
  Report Type: Spontaneous
  Country: EU (occurrence: EU)
  Receive Date: 20251031
  Receipt Date: 20251031
  Transmission Date: 20260118
  Serious: Yes (Hospitalization, Other)
  Sender: AUROBINDO
  Company Number: EU-BRUNO-20250417

PATIENT
  Age: 60 Year
  Sex: Male

DRUGS (12)
  1. FUROSEMIDE [Suspect]
     Active Substance: FUROSEMIDE
     Indication: Condition aggravated
     Dosage: 0.25 MILLIGRAM, EVERY OTHER DAY (
     Route: 065
  2. FUROSEMIDE [Suspect]
     Active Substance: FUROSEMIDE
     Indication: Cardiac failure
  3. METOPROLOL [Suspect]
     Active Substance: METOPROLOL
     Indication: Condition aggravated
     Dosage: 100 MILLIGRAM, EVERY OTHER DAY (O
     Route: 065
  4. METOPROLOL [Suspect]
     Active Substance: METOPROLOL
     Indication: Cardiac failure
  5. RIVAROXABAN [Suspect]
     Active Substance: RIVAROXABAN
     Indication: Condition aggravated
     Dosage: 20 MILLIGRAM, ONCE A DAY (O
     Route: 065
  6. RIVAROXABAN [Suspect]
     Active Substance: RIVAROXABAN
     Indication: Cardiac failure
  7. SACUBITRIL\VALSARTAN [Suspect]
     Active Substance: SACUBITRIL\VALSARTAN
     Indication: Condition aggravated
     Dosage: 1 DOSAGE FORM, EVERY OTHER DAY (OPTIMIZED GUIDED MEDICAL THERAPY (OGMT)
     Route: 065
  8. SACUBITRIL\VALSARTAN [Suspect]
     Active Substance: SACUBITRIL\VALSARTAN
     Indication: Cardiac failure
  9. DIGOXIN [Suspect]
     Active Substance: DIGOXIN
     Indication: Condition aggravated
     Dosage: 0.12 MILLIGRAM, ONCE A DAY (OPTIMIZED GUIDED MEDICAL THERAPY (OGMT)
     Route: 065
  10. DIGOXIN [Suspect]
     Active Substance: DIGOXIN
     Indication: Cardiac failure
  11. CANRENONE [Suspect]
     Active Substance: CANRENONE
     Indication: Condition aggravated
     Dosage: 0.5 DOSAGE FORM, ONCE A DAY (OPTIMIZED GUIDED MEDICAL THERAPY (OGMT)
     Route: 065
  12. CANRENONE [Suspect]
     Active Substance: CANRENONE
     Indication: Cardiac failure

REACTIONS (4)
  - Acute pulmonary oedema [Recovered/Resolved]
  - Atrial fibrillation [Recovered/Resolved]
  - Dyspnoea [Recovered/Resolved]
  - Therapy non-responder [Unknown]

NARRATIVE: CASE EVENT DATE: 20220601
